FAERS Safety Report 25047495 (Version 3)
Quarter: 2025Q2

REPORT INFORMATION
  Report Type: Spontaneous
  Country: ES (occurrence: ES)
  Receive Date: 20250306
  Receipt Date: 20250528
  Transmission Date: 20250717
  Serious: Yes (Hospitalization)
  Sender: EISAI
  Company Number: None

PATIENT
  Age: 83 Year
  Sex: Female
  Weight: 33.35 kg

DRUGS (3)
  1. DONEPEZIL [Suspect]
     Active Substance: DONEPEZIL
     Indication: Dementia Alzheimer^s type
     Dates: start: 20240510, end: 20241103
  2. TRAZODONE [Suspect]
     Active Substance: TRAZODONE HYDROCHLORIDE
     Indication: Dementia Alzheimer^s type
     Dates: start: 20240709, end: 20241108
  3. PAROXETINE [Suspect]
     Active Substance: PAROXETINE
     Indication: Depression
     Dates: start: 20240628, end: 20241030

REACTIONS (3)
  - Hepatic cytolysis [Not Recovered/Not Resolved]
  - Hyperbilirubinaemia [Not Recovered/Not Resolved]
  - Hypocoagulable state [Not Recovered/Not Resolved]

NARRATIVE: CASE EVENT DATE: 20241006
